FAERS Safety Report 6105665-4 (Version None)
Quarter: 2009Q1

REPORT INFORMATION
  Report Type: 
  Country: None (occurrence: None)
  Receive Date: 20090304
  Receipt Date: 20090304
  Transmission Date: 20090719
  Serious: Yes (Death)
  Sender: FDA-Public Use
  Company Number: None

PATIENT
  Sex: Male
  Weight: 83.5 kg

DRUGS (1)
  1. SUNITINIB 50 MG - PFIZER [Suspect]
     Indication: BLADDER CANCER
     Dosage: 50MG PO QD
     Route: 048
     Dates: start: 20090130, end: 20090226

REACTIONS (4)
  - DYSPEPSIA [None]
  - FALL [None]
  - HYPERTENSION [None]
  - UNRESPONSIVE TO STIMULI [None]
